FAERS Safety Report 16703712 (Version 1)
Quarter: 2019Q3

REPORT INFORMATION
  Report Type: Spontaneous
  Country: US (occurrence: US)
  Receive Date: 20190814
  Receipt Date: 20190814
  Transmission Date: 20191004
  Serious: No
  Sender: FDA-Public Use
  Company Number: US-TEIKOKU PHARMA USA-TPU2019-00575

PATIENT
  Sex: Female

DRUGS (2)
  1. LIDOCAINE PATCH [Suspect]
     Active Substance: LIDOCAINE
     Indication: ABDOMINAL PAIN
     Dosage: TWO TO THREE PATCHES A DAY.
  2. CHEMO PILLS [Suspect]
     Active Substance: UNSPECIFIED INGREDIENT
     Indication: LEUKAEMIA

REACTIONS (3)
  - Drug ineffective for unapproved indication [Unknown]
  - Malaise [Unknown]
  - Pain [Unknown]
